FAERS Safety Report 11515191 (Version 3)
Quarter: 2015Q3

REPORT INFORMATION
  Report Type: Spontaneous
  Country: IT (occurrence: IT)
  Receive Date: 20150916
  Receipt Date: 20150923
  Transmission Date: 20151125
  Serious: Yes (Hospitalization)
  Sender: FDA-Public Use
  Company Number: IT-TEVA-592873ACC

PATIENT
  Age: 95 Year
  Sex: Male

DRUGS (5)
  1. AMLODIPINE [Suspect]
     Active Substance: AMLODIPINE BESYLATE
     Indication: HYPERTENSION
     Dosage: 2.5 MILLIGRAM DAILY;
     Route: 048
     Dates: start: 20150703, end: 20150728
  2. TALOFEN - 4 G/100 ML GOCCE ORALI SOLUZIONE [Concomitant]
     Indication: NEUROSIS
     Dosage: 20 GTT
     Route: 048
     Dates: end: 20150907
  3. CITALOPRAM BROMOHYDRATE [Suspect]
     Active Substance: CITALOPRAM HYDROBROMIDE
     Indication: POST-TRAUMATIC STRESS DISORDER
     Dosage: 20 MILLIGRAM DAILY;
     Route: 048
     Dates: start: 20150703, end: 20150728
  4. SIRIO - 25 MG + 100 MG COMPRESSE EFFERVESCENTI - CHIESI FARMACEUTICI S [Suspect]
     Active Substance: CARBIDOPA\MELEVODOPA
     Indication: PARKINSON^S DISEASE
     Dosage: 125 MILLIGRAM DAILY;
     Route: 048
     Dates: start: 20141028, end: 20150728
  5. HALCION - 125 MICROGRAMMI COMPRESSE [Concomitant]
     Indication: INSOMNIA
     Dosage: 125 UG
     Route: 048
     Dates: start: 20150703, end: 20150728

REACTIONS (3)
  - Bradycardia [Recovered/Resolved]
  - Hypertensive crisis [Recovered/Resolved]
  - Off label use [Unknown]

NARRATIVE: CASE EVENT DATE: 20150728
